FAERS Safety Report 21234483 (Version 4)
Quarter: 2022Q4

REPORT INFORMATION
  Report Type: Report from Study
  Country: US (occurrence: US)
  Receive Date: 20220820
  Receipt Date: 20221129
  Transmission Date: 20230112
  Serious: Yes (Other)
  Sender: FDA-Public Use
  Company Number: US-BRISTOL-MYERS SQUIBB COMPANY-2022-074272

PATIENT
  Age: 76 Year
  Sex: Male
  Weight: 74.84 kg

DRUGS (9)
  1. REVLIMID [Suspect]
     Active Substance: LENALIDOMIDE
     Indication: Non-Hodgkin^s lymphoma
     Dosage: DAILY ON DAYS 1-21 THEN 7 DAYS OFF
     Route: 048
     Dates: start: 20220713
  2. REVLIMID [Suspect]
     Active Substance: LENALIDOMIDE
     Dosage: 21 OUT OF 28 DAYS
     Route: 048
     Dates: start: 20220713
  3. ASPIRIN [Concomitant]
     Active Substance: ASPIRIN
     Indication: Product used for unknown indication
     Route: 065
  4. SIMVASTATIN-DP [Concomitant]
     Indication: Product used for unknown indication
     Route: 065
  5. METOPROLOL SUCCINATE [Concomitant]
     Active Substance: METOPROLOL SUCCINATE
     Indication: Product used for unknown indication
     Route: 065
  6. HYDROCODONE;IBUPROFEN [Concomitant]
     Indication: Product used for unknown indication
     Route: 065
  7. PROCHLORPERAZINE MALEATE [Concomitant]
     Active Substance: PROCHLORPERAZINE MALEATE
     Indication: Product used for unknown indication
     Route: 065
  8. BRUKINSA [Concomitant]
     Active Substance: ZANUBRUTINIB
     Indication: Product used for unknown indication
     Route: 065
  9. MIRTAZAPINE [Concomitant]
     Active Substance: MIRTAZAPINE
     Indication: Product used for unknown indication
     Route: 065

REACTIONS (5)
  - COVID-19 [Recovering/Resolving]
  - Skin mass [Unknown]
  - Skin ulcer [Unknown]
  - Pruritus [Unknown]
  - Rash [Unknown]

NARRATIVE: CASE EVENT DATE: 20220901
